FAERS Safety Report 7720546-8 (Version None)
Quarter: 2011Q3

REPORT INFORMATION
  Report Type: 
  Country: None (occurrence: None)
  Receive Date: 20110831
  Receipt Date: 20110831
  Transmission Date: 20111222
  Serious: Yes (Other)
  Sender: FDA-Public Use
  Company Number: None

PATIENT
  Sex: Female
  Weight: 61.234 kg

DRUGS (1)
  1. CREST W/ FLUORIDE [Suspect]
     Indication: DENTAL DISORDER PROPHYLAXIS
     Dosage: TOOTHBURSH AMOUNT
     Route: 004
     Dates: start: 20110813, end: 20110826

REACTIONS (6)
  - DYSGEUSIA [None]
  - GINGIVAL BLISTER [None]
  - RASH [None]
  - TONGUE BLISTERING [None]
  - GINGIVAL PRURITUS [None]
  - SKIN EXFOLIATION [None]
